FAERS Safety Report 7648015-4 (Version None)
Quarter: 2011Q3

REPORT INFORMATION
  Report Type: 
  Country: None (occurrence: None)
  Receive Date: 20110801
  Receipt Date: 20110722
  Transmission Date: 20111222
  Serious: Yes (Death)
  Sender: FDA-Public Use
  Company Number: JP-AMGEN-JPNCT2011029003

PATIENT
  Age: 74 Year
  Sex: Female
  Weight: 38 kg

DRUGS (10)
  1. MAGNESIUM OXIDE [Concomitant]
     Dosage: UNK
     Route: 048
  2. IRINOTECAN HCL [Concomitant]
     Route: 041
     Dates: start: 20101117, end: 20101206
  3. MIYA-BM [Concomitant]
     Dosage: UNK
     Route: 048
  4. PANITUMUMAB [Suspect]
     Indication: COLORECTAL CANCER
     Dosage: 6 MG/KG, Q2WK
     Route: 041
     Dates: start: 20100922, end: 20101206
  5. ANTIHISTAMINES [Concomitant]
     Indication: PROPHYLAXIS
     Dosage: UNK
     Route: 065
  6. ARICEPT [Concomitant]
     Dosage: UNK
     Route: 048
  7. VERAPAMIL HCL [Concomitant]
     Dosage: UNK
     Route: 048
  8. LEUCON [Concomitant]
     Dosage: UNK
     Route: 048
  9. IRINOTECAN HCL [Concomitant]
     Indication: COLORECTAL CANCER
     Route: 041
     Dates: start: 20100922
  10. CORTICOSTEROIDS [Concomitant]
     Indication: PROPHYLAXIS
     Dosage: UNK
     Route: 065

REACTIONS (1)
  - DEATH [None]
